FAERS Safety Report 9267322 (Version 2)
Quarter: 2013Q3

REPORT INFORMATION
  Report Type: Spontaneous
  Country: US (occurrence: US)
  Receive Date: 20130502
  Receipt Date: 20130809
  Transmission Date: 20140515
  Serious: Yes (Other)
  Sender: FDA-Public Use
  Company Number: US-JNJFOC-20130415445

PATIENT
  Age: 39 Year
  Sex: Female
  Weight: 81.19 kg

DRUGS (3)
  1. TOPIRAMATE [Suspect]
     Indication: MIGRAINE PROPHYLAXIS
     Route: 048
     Dates: end: 20130124
  2. TOPIRAMATE [Suspect]
     Indication: MIGRAINE PROPHYLAXIS
     Route: 048
     Dates: end: 20130317
  3. TOPIRAMATE [Suspect]
     Indication: MIGRAINE PROPHYLAXIS
     Dosage: 75 OR 100MG/TABLET/75 OR 100MG/DAILY
     Route: 048
     Dates: end: 2013

REACTIONS (4)
  - Nephrolithiasis [Recovering/Resolving]
  - Antinuclear antibody positive [Recovered/Resolved with Sequelae]
  - Renal tubular acidosis [Recovering/Resolving]
  - Urine abnormality [Recovered/Resolved]
